FAERS Safety Report 9449002 (Version 2)
Quarter: 2013Q3

REPORT INFORMATION
  Report Type: Spontaneous
  Country: US (occurrence: US)
  Receive Date: 20130808
  Receipt Date: 20130814
  Transmission Date: 20140515
  Serious: Yes (Other)
  Sender: FDA-Public Use
  Company Number: US-PFIZER INC-2013230318

PATIENT
  Age: 71 Year
  Sex: Female
  Weight: 49.89 kg

DRUGS (2)
  1. TOVIAZ [Suspect]
     Indication: MICTURITION URGENCY
     Dosage: UNK, 1X/DAY
     Route: 048
     Dates: start: 20130723, end: 20130725
  2. TOVIAZ [Suspect]
     Indication: BLADDER SPASM

REACTIONS (2)
  - Abasia [Unknown]
  - Balance disorder [Recovered/Resolved]
